FAERS Safety Report 6177683-1 (Version None)
Quarter: 2009Q2

REPORT INFORMATION
  Report Type: 
  Country: None (occurrence: None)
  Receive Date: 20090504
  Receipt Date: 20090423
  Transmission Date: 20091009
  Serious: Yes (Other)
  Sender: FDA-Public Use
  Company Number: PHHY2009LK15690

PATIENT
  Age: 41 Year
  Sex: Male

DRUGS (5)
  1. CLOZAPINE [Suspect]
     Indication: SCHIZOPHRENIA
     Dosage: 400 MG PER DAY
     Dates: start: 20071001
  2. CLOZAPINE [Suspect]
     Indication: HALLUCINATION, AUDITORY
  3. HYDROCHLOROTHIAZIDE [Concomitant]
     Dosage: 25 MG PER DAY
  4. LOSARTAN POSTASSIUM [Concomitant]
     Dosage: 50 MG, BID
  5. NIFEDIPINE [Concomitant]
     Dosage: 20 MG, BID

REACTIONS (6)
  - ACROMEGALY [None]
  - DECREASED APPETITE [None]
  - DIABETES MELLITUS [None]
  - ERECTILE DYSFUNCTION [None]
  - PROGNATHISM [None]
  - WEIGHT DECREASED [None]
